FAERS Safety Report 17398245 (Version 3)
Quarter: 2020Q1

REPORT INFORMATION
  Report Type: Spontaneous
  Country: CZ (occurrence: CZ)
  Receive Date: 20200210
  Receipt Date: 20200305
  Transmission Date: 20200409
  Serious: Yes (Death, Other)
  Sender: FDA-Public Use
  Company Number: CZ-MYLANLABS-2020M1014127

PATIENT
  Sex: Male

DRUGS (9)
  1. SUNITINIB [Suspect]
     Active Substance: SUNITINIB
     Indication: GASTROINTESTINAL STROMAL TUMOUR
     Dosage: 50 MG, QD
     Route: 065
  2. SUNITINIB [Suspect]
     Active Substance: SUNITINIB
     Dosage: 37.5 MG, DAILY
     Route: 065
     Dates: start: 200610
  3. NILOTINIB [Suspect]
     Active Substance: NILOTINIB
     Indication: GASTROINTESTINAL STROMAL TUMOUR
     Dosage: UNK
     Route: 065
  4. IMATINIB. [Suspect]
     Active Substance: IMATINIB MESYLATE
     Dosage: 800 MILLIGRAM, QD
     Route: 065
  5. REGORAFENIB. [Suspect]
     Active Substance: REGORAFENIB
     Indication: GASTROINTESTINAL STROMAL TUMOUR
     Dosage: UNK
     Route: 065
  6. IMATINIB. [Suspect]
     Active Substance: IMATINIB MESYLATE
     Indication: GASTROINTESTINAL STROMAL TUMOUR
     Dosage: 400 MG, QD
     Route: 065
  7. IMATINIB. [Suspect]
     Active Substance: IMATINIB MESYLATE
     Dosage: 600 MILLIGRAM, QD
     Route: 065
  8. IMATINIB. [Suspect]
     Active Substance: IMATINIB MESYLATE
     Dosage: 300 MILLIGRAM, QD
     Route: 065
  9. SUNITINIB [Suspect]
     Active Substance: SUNITINIB
     Dosage: 50 MG, DAILY (4 WEEKS)
     Route: 065
     Dates: start: 200609, end: 200610

REACTIONS (5)
  - Gastrointestinal stromal tumour [Fatal]
  - Metastases to liver [Fatal]
  - Gene mutation [Unknown]
  - Malignant neoplasm progression [Fatal]
  - Hepatotoxicity [Unknown]
